FAERS Safety Report 6137451-3 (Version None)
Quarter: 2009Q1

REPORT INFORMATION
  Report Type: 
  Country: None (occurrence: None)
  Receive Date: 20090326
  Receipt Date: 20090311
  Transmission Date: 20090719
  Serious: Yes (Other)
  Sender: FDA-Public Use
  Company Number: 2007-US-000205

PATIENT
  Age: 10 Year
  Sex: Male
  Weight: 19.8 kg

DRUGS (1)
  1. INCRELEX [Suspect]
     Indication: BLOOD GROWTH HORMONE ABNORMAL
     Dosage: 120 UG/KG, BID, SUBCUTANEOUS; 80 UG/KG, BID, SUBCUTANEOUS; 120 UG/KG, BID, SUBCUTANEOUS
     Route: 058
     Dates: start: 20070207, end: 20070313

REACTIONS (6)
  - HYPERSENSITIVITY [None]
  - INJECTION SITE HAEMATOMA [None]
  - INJECTION SITE INDURATION [None]
  - INJECTION SITE URTICARIA [None]
  - INJECTION SITE WARMTH [None]
  - NO THERAPEUTIC RESPONSE [None]
